FAERS Safety Report 20556670 (Version 1)
Quarter: 2022Q1

REPORT INFORMATION
  Report Type: Spontaneous
  Country: NL (occurrence: NL)
  Receive Date: 20220307
  Receipt Date: 20220307
  Transmission Date: 20220423
  Serious: Yes (Other)
  Sender: FDA-Public Use
  Company Number: NL-SUN PHARMACEUTICAL INDUSTRIES LTD-2022RR-328763

PATIENT
  Sex: Male
  Weight: 80 kg

DRUGS (1)
  1. ISOTRETINOIN [Suspect]
     Active Substance: ISOTRETINOIN
     Indication: Acne
     Dosage: 1X PER DAY 2 PIECES
     Route: 065
     Dates: start: 202103, end: 20210708

REACTIONS (3)
  - Diffuse alopecia [Recovered/Resolved]
  - Psychotic disorder [Recovering/Resolving]
  - Stevens-Johnson syndrome [Recovered/Resolved]
